FAERS Safety Report 9369809 (Version 1)
Quarter: 2013Q2

REPORT INFORMATION
  Report Type: Spontaneous
  Country: BR (occurrence: BR)
  Receive Date: 20130626
  Receipt Date: 20130626
  Transmission Date: 20140414
  Serious: Yes (Other)
  Sender: FDA-Public Use
  Company Number: BR-JNJFOC-20130610994

PATIENT
  Sex: 0

DRUGS (3)
  1. DOXORUBICIN [Suspect]
     Indication: BREAST CANCER
     Route: 042
  2. DOCETAXEL [Suspect]
     Indication: BREAST CANCER
     Dosage: AT LEAST ONE HOUR INFUSION
     Route: 042
  3. FILGRASTIM [Suspect]
     Indication: BREAST CANCER
     Dosage: IN FIRST CYCLE ONLY FOR 5 DAYS AT LEAST AND A MAXIMUM OF 14 DAYS. BASED ON ACTUAL??BODY WEIGHT
     Route: 058

REACTIONS (16)
  - Cardio-respiratory arrest [Unknown]
  - Ischaemic stroke [Unknown]
  - Pulmonary infarction [Unknown]
  - Sepsis [Unknown]
  - Alanine aminotransferase increased [Unknown]
  - Syncope [Unknown]
  - Hyperglycaemia [Unknown]
  - Myalgia [Unknown]
  - Aspartate aminotransferase increased [Unknown]
  - Thrombocytopenia [Unknown]
  - Adverse event [Unknown]
  - Nausea [Unknown]
  - Alopecia [Unknown]
  - Asthenia [Unknown]
  - Bone pain [Unknown]
  - Diarrhoea [Unknown]
